FAERS Safety Report 5726879-9 (Version None)
Quarter: 2008Q2

REPORT INFORMATION
  Report Type: 
  Country: None (occurrence: None)
  Receive Date: 20080502
  Receipt Date: 20080421
  Transmission Date: 20081010
  Serious: Yes (Other)
  Sender: FDA-Public Use
  Company Number: CO-PFIZER INC-2008036317

PATIENT
  Age: 23 Year
  Sex: Male

DRUGS (1)
  1. CHAMPIX [Suspect]

REACTIONS (3)
  - EPISTAXIS [None]
  - EYE HAEMORRHAGE [None]
  - MUCOSAL DRYNESS [None]
